FAERS Safety Report 6524999-2 (Version None)
Quarter: 2009Q4

REPORT INFORMATION
  Report Type: 
  Country: None (occurrence: None)
  Receive Date: 20091231
  Receipt Date: 20091231
  Transmission Date: 20100525
  Serious: Yes (Other)
  Sender: FDA-Public Use
  Company Number: None

PATIENT
  Age: 52 Year
  Sex: Female
  Weight: 54.4316 kg

DRUGS (2)
  1. WELLBUTRIN [Suspect]
     Indication: DEPRESSION
     Dates: start: 20090328, end: 20090614
  2. EFFEXOR XR [Suspect]
     Indication: DEPRESSION
     Dates: start: 20090622, end: 20091022

REACTIONS (8)
  - IRRITABILITY [None]
  - MUSCLE DISORDER [None]
  - NO THERAPEUTIC RESPONSE [None]
  - OEDEMA MOUTH [None]
  - SKIN BURNING SENSATION [None]
  - STOMATITIS [None]
  - SWOLLEN TONGUE [None]
  - TINNITUS [None]
